FAERS Safety Report 4849260-3 (Version None)
Quarter: 2005Q4

REPORT INFORMATION
  Report Type: 
  Country: None (occurrence: None)
  Receive Date: 20051207
  Receipt Date: 20051202
  Transmission Date: 20060501
  Serious: Yes (Death, Life-Threatening, Hospitalization)
  Sender: FDA-Public Use
  Company Number: OXYA20050010

PATIENT
  Age: 69 Year
  Sex: Male

DRUGS (4)
  1. OXYCODONE/APAP [Suspect]
     Dosage: PO
     Route: 048
     Dates: start: 20040101, end: 20040101
  2. PHENYTOIN/APAP [Suspect]
     Dosage: PO
     Route: 048
     Dates: start: 20040101, end: 20040101
  3. ZOLPIDEM TARTRATE [Suspect]
     Dates: start: 20040101, end: 20040101
  4. PANTOPRAZOLE [Suspect]
     Dates: start: 20040101, end: 20040101

REACTIONS (3)
  - COMPLETED SUICIDE [None]
  - DEPRESSED LEVEL OF CONSCIOUSNESS [None]
  - HYPOTENSION [None]
